FAERS Safety Report 8821692 (Version 1)
Quarter: 2012Q4

REPORT INFORMATION
  Report Type: 
  Country: US (occurrence: US)
  Receive Date: 20121002
  Receipt Date: 20121002
  Transmission Date: 20130627
  Serious: No
  Sender: FDA-Public Use
  Company Number: US-VERTEX PHARMACEUTICAL INC.-2012-020580

PATIENT
  Sex: Male

DRUGS (13)
  1. VX-950 [Suspect]
     Indication: HEPATITIS C
     Dosage: 750 mg, tid
     Route: 048
  2. RIBAVIRIN [Concomitant]
     Indication: HEPATITIS C
     Dosage: 200 mg, UNK
  3. PEGASYS [Concomitant]
     Indication: HEPATITIS C
  4. ATENOLOL [Concomitant]
     Dosage: 25 mg, UNK
  5. LISINOPRIL [Concomitant]
     Dosage: 10 mg, UNK
  6. METFORMIN [Concomitant]
     Dosage: 1000 mg, UNK
  7. ASPIRIN [Concomitant]
     Dosage: 325 mg, UNK
  8. ALPRAZOLAM [Concomitant]
     Dosage: 0.25 mg, UNK
  9. OXYCODONE [Concomitant]
     Dosage: 5 mg, UNK
  10. TIZANIDINE [Concomitant]
     Dosage: 2 mg, UNK
  11. VITAMIN B12                        /00056201/ [Concomitant]
  12. B12                                /00056201/ [Concomitant]
  13. POTASSIUM [Concomitant]
     Dosage: 99 mg, UNK

REACTIONS (3)
  - Influenza like illness [Unknown]
  - Abdominal discomfort [Unknown]
  - Therapeutic response unexpected [Unknown]
